FAERS Safety Report 19039614 (Version 1)
Quarter: 2021Q1

REPORT INFORMATION
  Report Type: Spontaneous
  Country: ES (occurrence: ES)
  Receive Date: 20210322
  Receipt Date: 20210322
  Transmission Date: 20210420
  Serious: Yes (Life-Threatening, Hospitalization)
  Sender: FDA-Public Use
  Company Number: ES-MYLANLABS-2021M1017158

PATIENT
  Age: 62 Year
  Sex: Female

DRUGS (2)
  1. CLOZAPINE. [Suspect]
     Active Substance: CLOZAPINE
     Indication: PSYCHIATRIC DECOMPENSATION
     Dosage: INITIAL DOSE
     Route: 065
  2. CLOZAPINE. [Suspect]
     Active Substance: CLOZAPINE
     Dosage: 900 MILLIGRAM, QD
     Route: 065

REACTIONS (4)
  - Ventricular dysfunction [Unknown]
  - Myocarditis [Unknown]
  - Respiratory failure [Unknown]
  - Cardiogenic shock [Unknown]
